FAERS Safety Report 4475860-9 (Version None)
Quarter: 2004Q4

REPORT INFORMATION
  Report Type: 
  Country: None (occurrence: None)
  Receive Date: 20041015
  Receipt Date: 20041006
  Transmission Date: 20050328
  Serious: Yes (Hospitalization)
  Sender: FDA-Public Use
  Company Number: PHBS2004JP13252

PATIENT
  Age: 49 Year
  Sex: Female

DRUGS (3)
  1. CYCLOSPORINE [Suspect]
     Indication: COLITIS ULCERATIVE
     Route: 065
     Dates: start: 20020112
  2. PREDONINE [Suspect]
     Indication: COLITIS ULCERATIVE
     Dosage: 60 MG/D
     Route: 065
     Dates: start: 20011101
  3. AZATHIOPRINE [Suspect]
     Indication: COLITIS ULCERATIVE
     Route: 065
     Dates: start: 20011208

REACTIONS (6)
  - COLECTOMY TOTAL [None]
  - CYTOMEGALOVIRUS INFECTION [None]
  - INTESTINAL ANASTOMOSIS [None]
  - INTESTINAL STOMA [None]
  - PNEUMONIA STAPHYLOCOCCAL [None]
  - PNEUMOTHORAX [None]
